FAERS Safety Report 9218430 (Version 1)
Quarter: 2013Q2

REPORT INFORMATION
  Report Type: Spontaneous
  Country: US (occurrence: US)
  Receive Date: 20130409
  Receipt Date: 20130409
  Transmission Date: 20140414
  Serious: No
  Sender: FDA-Public Use
  Company Number: US-BIOGENIDEC-2013BI030299

PATIENT
  Age: 69 Year
  Sex: Male

DRUGS (3)
  1. TYSABRI [Suspect]
     Indication: MULTIPLE SCLEROSIS
     Route: 042
     Dates: start: 20090904
  2. SULFA DRUGS [Concomitant]
     Indication: STAPHYLOCOCCAL INFECTION
  3. SULFA DRUGS [Concomitant]

REACTIONS (3)
  - Urinary tract infection [Not Recovered/Not Resolved]
  - Abnormal behaviour [Not Recovered/Not Resolved]
  - Dementia [Not Recovered/Not Resolved]
